FAERS Safety Report 7635628-9 (Version None)
Quarter: 2011Q3

REPORT INFORMATION
  Report Type: 
  Country: None (occurrence: None)
  Receive Date: 20110726
  Receipt Date: 20110712
  Transmission Date: 20111222
  Serious: Yes (Hospitalization)
  Sender: FDA-Public Use
  Company Number: US-CELGENEUS-163-21880-11071262

PATIENT
  Age: 76 Year
  Sex: Male
  Weight: 64.41 kg

DRUGS (10)
  1. ACETAMINOPHEN [Concomitant]
     Indication: PAIN
     Dosage: 650 MILLIGRAM
     Route: 065
  2. ANAGRELIDE HCL [Concomitant]
     Indication: THROMBOCYTOSIS
     Dosage: .5 MILLIGRAM
     Route: 065
  3. ASPIRIN [Concomitant]
     Indication: THROMBOCYTOSIS
     Dosage: 325 MILLIGRAM
     Route: 065
  4. MULTI-VITAMINS [Concomitant]
     Dosage: 1 TABLET
     Route: 048
  5. BENADRYL [Concomitant]
     Dosage: 25 MILLIGRAM
     Route: 065
  6. DEMECLOCYCLINE HCL [Concomitant]
     Dosage: 300 MILLIGRAM
     Route: 048
  7. LISINOPRIL [Concomitant]
     Dosage: 40 MILLIGRAM
     Route: 065
  8. VIDAZA [Suspect]
     Dosage: 75 MILLIGRAM/SQ. METER
     Route: 048
     Dates: start: 20110620, end: 20110624
  9. REVLIMID [Suspect]
     Dosage: 50 MILLIGRAM
     Route: 048
     Dates: start: 20110620, end: 20110701
  10. PRAVASTATIN [Concomitant]
     Dosage: 1 TABLET
     Route: 048

REACTIONS (5)
  - ASTHENIA [None]
  - OEDEMA PERIPHERAL [None]
  - DYSPNOEA [None]
  - HYPERSENSITIVITY [None]
  - FATIGUE [None]
